FAERS Safety Report 10231467 (Version 1)
Quarter: 2014Q2

REPORT INFORMATION
  Report Type: Spontaneous
  Country: US (occurrence: US)
  Receive Date: 20140611
  Receipt Date: 20140611
  Transmission Date: 20141212
  Serious: Yes (Hospitalization, Other)
  Sender: FDA-Public Use
  Company Number: US-GILEAD-2014-0104963

PATIENT
  Sex: Male

DRUGS (23)
  1. LETAIRIS [Suspect]
     Indication: PULMONARY ARTERIAL HYPERTENSION
     Dosage: 10 MG, QD
     Route: 065
     Dates: start: 20131114
  2. ADCIRCA [Concomitant]
  3. TRIMETHOPRIM [Concomitant]
  4. TAMSULOSIN [Concomitant]
  5. PREDNISONE [Concomitant]
  6. MYCOPHENOLATE [Concomitant]
  7. METOPROLOL [Concomitant]
  8. FUROSEMIDE [Concomitant]
  9. FAMOTIDINE [Concomitant]
  10. CLOPIDOGREL [Concomitant]
  11. CALCIUM CITRATE [Concomitant]
  12. CALCITRIOL [Concomitant]
  13. ALLOPURINOL [Concomitant]
  14. ASPIRIN [Concomitant]
  15. HEPARIN [Concomitant]
  16. HUMALOG [Concomitant]
  17. CITALOPRAM [Concomitant]
  18. LANTUS [Concomitant]
  19. NYSTATIN [Concomitant]
  20. MIRALAX                            /06344701/ [Concomitant]
  21. SENNA                              /00571901/ [Concomitant]
  22. DOCUSATE [Concomitant]
  23. MELATONIN [Concomitant]

REACTIONS (1)
  - Unevaluable event [Not Recovered/Not Resolved]
